FAERS Safety Report 5456488-0 (Version None)
Quarter: 2007Q3

REPORT INFORMATION
  Report Type: 
  Country: None (occurrence: None)
  Receive Date: 20070918
  Receipt Date: 20070430
  Transmission Date: 20080115
  Serious: Yes (Other)
  Sender: FDA-Public Use
  Company Number: US-ASTRAZENECA-2006UW25129

PATIENT
  Sex: Female
  Weight: 66.4 kg

DRUGS (2)
  1. SEROQUEL [Suspect]
     Route: 048
     Dates: end: 20061129
  2. CLOZARIL [Concomitant]
     Dates: start: 19920101, end: 20060101

REACTIONS (2)
  - HYPERGLYCAEMIA [None]
  - TARDIVE DYSKINESIA [None]
